FAERS Safety Report 7110935-7 (Version None)
Quarter: 2010Q4

REPORT INFORMATION
  Report Type: 
  Country: None (occurrence: None)
  Receive Date: 20101112
  Receipt Date: 20101027
  Transmission Date: 20110411
  Serious: Yes (Hospitalization)
  Sender: FDA-Public Use
  Company Number: 014748

PATIENT
  Sex: Male

DRUGS (1)
  1. CIMZIA [Suspect]
     Dosage: (STARTED ON APPROXIMATELY 03/FEB/2010, SUBCUTANEOUS)
     Route: 058
     Dates: start: 20100203

REACTIONS (8)
  - BLOOD CHLORIDE ABNORMAL [None]
  - BLOOD SODIUM ABNORMAL [None]
  - DECREASED APPETITE [None]
  - DEHYDRATION [None]
  - LETHARGY [None]
  - MALABSORPTION [None]
  - NAUSEA [None]
  - WEIGHT DECREASED [None]
